FAERS Safety Report 21382532 (Version 1)
Quarter: 2022Q3

REPORT INFORMATION
  Report Type: Other
  Country: US (occurrence: None)
  Receive Date: 20220927
  Receipt Date: 20220927
  Transmission Date: 20221027
  Serious: Yes (Hospitalization)
  Sender: FDA-Public Use
  Company Number: US-ROCHE-3180112

PATIENT
  Age: 73 Year
  Sex: Female
  Weight: 65.830 kg

DRUGS (2)
  1. ESBRIET [Suspect]
     Active Substance: PIRFENIDONE
     Indication: Idiopathic pulmonary fibrosis
     Dosage: TAKE 3 TABLET(S) BY MOUTH 3 TIMES A DAY WITH FOOD
     Route: 048
  2. OXYGEN [Concomitant]
     Active Substance: OXYGEN

REACTIONS (2)
  - Oxygen saturation decreased [Not Recovered/Not Resolved]
  - Apnoea [Recovered/Resolved]

NARRATIVE: CASE EVENT DATE: 20220903
